FAERS Safety Report 8780298 (Version 1)
Quarter: 2012Q4

REPORT INFORMATION
  Report Type: Spontaneous
  Country: US (occurrence: None)
  Receive Date: 20120830
  Receipt Date: 20120830
  Transmission Date: 20130627
  Serious: Yes (Other)
  Sender: FDA-Public Use
  Company Number: E2B_00000351

PATIENT
  Age: 61 Year
  Sex: Female
  Weight: 90.72 kg

DRUGS (3)
  1. SERTRALINE HYDROCHLORIDE [Suspect]
     Indication: DEPRESSION
     Dosage: (1.5 dosage forms, 1 in 1 d)
     Route: 048
     Dates: start: 20120724, end: 20120725
  2. OMEPRAZOLE (UNKNOWN) [Concomitant]
  3. SIMVASTATIN (UNKNOWN) [Concomitant]

REACTIONS (8)
  - Oesophageal disorder [None]
  - Tracheal disorder [None]
  - Cardiac disorder [None]
  - Tracheal pain [None]
  - Oesophageal pain [None]
  - Angina pectoris [None]
  - Product substitution issue [None]
  - Product quality issue [None]
